FAERS Safety Report 7469812-4 (Version None)
Quarter: 2011Q2

REPORT INFORMATION
  Report Type: 
  Country: None (occurrence: None)
  Receive Date: 20110510
  Receipt Date: 20110502
  Transmission Date: 20111010
  Serious: Yes (Hospitalization, Other)
  Sender: FDA-Public Use
  Company Number: US-US-EMD SERONO, INC.-7024876

PATIENT
  Sex: Female

DRUGS (3)
  1. REBIF [Suspect]
     Route: 058
     Dates: start: 20100101
  2. REBIF [Suspect]
     Indication: PRODUCT USED FOR UNKNOWN INDICATION
     Route: 058
     Dates: start: 20100727
  3. IMITREX [Concomitant]
     Indication: MIGRAINE

REACTIONS (8)
  - ASTHENIA [None]
  - BONE PAIN [None]
  - NAUSEA [None]
  - CSF PRESSURE INCREASED [None]
  - EYE PAIN [None]
  - TREMOR [None]
  - MULTIPLE SCLEROSIS [None]
  - MIGRAINE [None]
